FAERS Safety Report 9525164 (Version 2)
Quarter: 2014Q1

REPORT INFORMATION
  Report Type: Spontaneous
  Country: US (occurrence: None)
  Receive Date: 20130912
  Receipt Date: 20140327
  Transmission Date: 20141002
  Serious: Yes (Hospitalization)
  Sender: FDA-Public Use
  Company Number: 2013-US-000048

PATIENT
  Age: 20 Year
  Sex: Female

DRUGS (1)
  1. XYREM [Suspect]
     Indication: SLEEP DISORDER
     Route: 048
     Dates: start: 20130724

REACTIONS (7)
  - Lymphoma [None]
  - Transfusion [None]
  - Insomnia [None]
  - Pain in extremity [None]
  - Off label use [None]
  - Pain in extremity [None]
  - Condition aggravated [None]
